FAERS Safety Report 6725512-7 (Version None)
Quarter: 2010Q2

REPORT INFORMATION
  Report Type: 
  Country: None (occurrence: None)
  Receive Date: 20100513
  Receipt Date: 20100513
  Transmission Date: 20101027
  Serious: Yes (Hospitalization)
  Sender: FDA-Public Use
  Company Number: None

PATIENT
  Age: 72 Year
  Sex: Female
  Weight: 61.2356 kg

DRUGS (1)
  1. ESTRADIOL [Suspect]
     Indication: BONE DISORDER
     Dosage: .5 MG DAILY ORAL
     Route: 048
     Dates: start: 20060915, end: 20100405

REACTIONS (1)
  - PULMONARY EMBOLISM [None]
